FAERS Safety Report 12383984 (Version 3)
Quarter: 2016Q3

REPORT INFORMATION
  Report Type: Report from Study
  Country: MX (occurrence: MX)
  Receive Date: 20160519
  Receipt Date: 20160722
  Transmission Date: 20161109
  Serious: Yes (Hospitalization, Disabling)
  Sender: FDA-Public Use
  Company Number: MX-ROCHE-1745577

PATIENT
  Age: 45 Year
  Sex: Female
  Weight: 50 kg

DRUGS (4)
  1. ROACTEMRA [Suspect]
     Active Substance: TOCILIZUMAB
     Indication: RHEUMATOID ARTHRITIS
     Route: 042
     Dates: start: 20160301
  2. OMEPRAZOLE. [Concomitant]
     Active Substance: OMEPRAZOLE
     Indication: RHEUMATOID ARTHRITIS
     Route: 048
     Dates: start: 1996
  3. PREGABALINE [Concomitant]
     Active Substance: PREGABALIN
     Indication: RHEUMATOID ARTHRITIS
     Route: 048
     Dates: start: 201602
  4. PREDNISONE. [Concomitant]
     Active Substance: PREDNISONE
     Indication: RHEUMATOID ARTHRITIS
     Route: 048
     Dates: start: 1996

REACTIONS (13)
  - Drug dose omission [Unknown]
  - Malaise [Recovering/Resolving]
  - Headache [Not Recovered/Not Resolved]
  - Vasculitis [Not Recovered/Not Resolved]
  - Pain [Not Recovered/Not Resolved]
  - Feeling of despair [Not Recovered/Not Resolved]
  - Skin swelling [Not Recovered/Not Resolved]
  - Paralysis [Not Recovered/Not Resolved]
  - Weight increased [Not Recovered/Not Resolved]
  - Swelling [Not Recovered/Not Resolved]
  - Knee deformity [Not Recovered/Not Resolved]
  - Insomnia [Not Recovered/Not Resolved]
  - Dysgraphia [Recovering/Resolving]

NARRATIVE: CASE EVENT DATE: 201603
